FAERS Safety Report 5897840-9 (Version None)
Quarter: 2008Q3

REPORT INFORMATION
  Report Type: 
  Country: None (occurrence: None)
  Receive Date: 20080924
  Receipt Date: 20080924
  Transmission Date: 20090109
  Serious: Yes (Other)
  Sender: FDA-Public Use
  Company Number: None

PATIENT
  Age: 54 Year
  Sex: Female
  Weight: 79.3795 kg

DRUGS (2)
  1. CYMBALTA [Suspect]
     Indication: MAJOR DEPRESSION
     Dosage: FROM 60 MG TO 10 MG QD PO
     Route: 048
     Dates: start: 20080801, end: 20080919
  2. CYMBALTA [Suspect]

REACTIONS (6)
  - DIZZINESS [None]
  - DRUG EFFECT DECREASED [None]
  - IMPAIRED DRIVING ABILITY [None]
  - NAUSEA [None]
  - VERTIGO [None]
  - WITHDRAWAL SYNDROME [None]
